FAERS Safety Report 4947461-7 (Version None)
Quarter: 2006Q1

REPORT INFORMATION
  Report Type: 
  Country: None (occurrence: None)
  Receive Date: 20060314
  Receipt Date: 20041117
  Transmission Date: 20060701
  Serious: Yes (Other)
  Sender: FDA-Public Use
  Company Number: 2004233879BE

PATIENT
  Age: 61 Year
  Sex: Female
  Weight: 72.5 kg

DRUGS (5)
  1. SOMAVERT [Suspect]
     Indication: ACROMEGALY
     Dosage: SEE IMAGE
     Route: 042
     Dates: start: 20030603, end: 20040110
  2. SOMAVERT [Suspect]
     Indication: ACROMEGALY
     Dosage: SEE IMAGE
     Route: 042
     Dates: start: 20040120, end: 20040310
  3. PROPRANOLOL [Concomitant]
  4. LEVOTHYROXINE SODIUM [Concomitant]
  5. INDAPAMIDE [Concomitant]

REACTIONS (3)
  - HEADACHE [None]
  - LABORATORY TEST ABNORMAL [None]
  - NEOPLASM PROGRESSION [None]
